FAERS Safety Report 12425386 (Version 1)
Quarter: 2016Q2

REPORT INFORMATION
  Report Type: Spontaneous
  Country: US (occurrence: US)
  Receive Date: 20160601
  Receipt Date: 20160601
  Transmission Date: 20160815
  Serious: No
  Sender: FDA-Public Use
  Company Number: US-MYLANLABS-2016M1017078

PATIENT
  Age: 72 Year
  Sex: Female
  Weight: 121.54 kg

DRUGS (3)
  1. LIDOCAINE PATCH [Suspect]
     Active Substance: LIDOCAINE
     Indication: ARTHRITIS
     Dosage: UNK, PRN
     Dates: start: 20160304, end: 20160304
  2. LIDOCAINE PATCH [Suspect]
     Active Substance: LIDOCAINE
     Indication: BACK PAIN
  3. LIDOCAINE PATCH [Suspect]
     Active Substance: LIDOCAINE
     Indication: OFF LABEL USE

REACTIONS (1)
  - Drug ineffective [Recovered/Resolved]

NARRATIVE: CASE EVENT DATE: 20160304
